FAERS Safety Report 15538575 (Version 1)
Quarter: 2018Q4

REPORT INFORMATION
  Report Type: Spontaneous
  Country: US (occurrence: US)
  Receive Date: 20181022
  Receipt Date: 20181022
  Transmission Date: 20190205
  Serious: No
  Sender: FDA-Public Use
  Company Number: US-BEH-2018095861

PATIENT
  Sex: Female
  Weight: 94.33 kg

DRUGS (22)
  1. HAEGARDA [Suspect]
     Active Substance: HUMAN C1-ESTERASE INHIBITOR
     Indication: HEREDITARY ANGIOEDEMA
     Dosage: 6000 IU, BIW
     Route: 058
     Dates: start: 20180912
  2. LANTUS [Concomitant]
     Active Substance: INSULIN GLARGINE
  3. SODIUM CHLORIDE. [Concomitant]
     Active Substance: SODIUM CHLORIDE
  4. COMBIVENT [Concomitant]
     Active Substance: ALBUTEROL SULFATE\IPRATROPIUM BROMIDE
  5. DIPHENHYDRAMINE. [Concomitant]
     Active Substance: DIPHENHYDRAMINE
  6. CLONIDINE. [Concomitant]
     Active Substance: CLONIDINE
  7. DEPAKOTE [Concomitant]
     Active Substance: DIVALPROEX SODIUM
  8. XYZAL [Concomitant]
     Active Substance: LEVOCETIRIZINE DIHYDROCHLORIDE
  9. FIRAZYR [Concomitant]
     Active Substance: ICATIBANT ACETATE
  10. HEPARIN [Concomitant]
     Active Substance: HEPARIN SODIUM
  11. EPINEPHRINE. [Concomitant]
     Active Substance: EPINEPHRINE
  12. NOVOLOG [Concomitant]
     Active Substance: INSULIN ASPART
  13. ZOFRAN [Concomitant]
     Active Substance: ONDANSETRON HYDROCHLORIDE
  14. QNASL [Concomitant]
     Active Substance: BECLOMETHASONE DIPROPIONATE
  15. HAEGARDA [Suspect]
     Active Substance: HUMAN C1-ESTERASE INHIBITOR
     Indication: PROPHYLAXIS
  16. STERILE WATER [Concomitant]
     Active Substance: WATER
  17. LMX                                /00033401/ [Concomitant]
  18. PROMETHAZINE [Concomitant]
     Active Substance: PROMETHAZINE\PROMETHAZINE HYDROCHLORIDE
  19. CYMBALTA [Concomitant]
     Active Substance: DULOXETINE HYDROCHLORIDE
  20. RUCONEST [Concomitant]
     Active Substance: HUMAN C1-ESTERASE INHIBITOR
  21. RISPERDAL [Concomitant]
     Active Substance: RISPERIDONE
  22. QVAR [Concomitant]
     Active Substance: BECLOMETHASONE DIPROPIONATE

REACTIONS (2)
  - Infection [Unknown]
  - Cough [Unknown]
